FAERS Safety Report 6071010-6 (Version None)
Quarter: 2009Q1

REPORT INFORMATION
  Report Type: 
  Country: None (occurrence: None)
  Receive Date: 20090209
  Receipt Date: 20090204
  Transmission Date: 20090719
  Serious: Yes (Other)
  Sender: FDA-Public Use
  Company Number: B0554743A

PATIENT
  Age: 35 Year
  Sex: Male
  Weight: 80 kg

DRUGS (4)
  1. ZYBAN [Suspect]
     Dosage: 150MG SEE DOSAGE TEXT
     Route: 048
     Dates: start: 20080922
  2. NICOTINELL [Concomitant]
     Dosage: 7MG THREE TIMES PER DAY
     Route: 062
     Dates: start: 20080929, end: 20080101
  3. NICOTINELL [Concomitant]
     Dosage: 7MG PER DAY
     Route: 062
     Dates: start: 20090101
  4. SYMBICORT [Concomitant]
     Route: 055

REACTIONS (4)
  - AGEUSIA [None]
  - ANOSMIA [None]
  - NASOPHARYNGITIS [None]
  - RHINORRHOEA [None]
